FAERS Safety Report 5476943-7 (Version None)
Quarter: 2007Q3

REPORT INFORMATION
  Report Type: 
  Country: None (occurrence: None)
  Receive Date: 20070831
  Receipt Date: 20070706
  Transmission Date: 20080115
  Serious: Yes (Other)
  Sender: FDA-Public Use
  Company Number: PHEH2007US02571

PATIENT
  Age: 70 Year
  Sex: Female
  Weight: 69.8 kg

DRUGS (11)
  1. EXJADE [Suspect]
     Indication: IRON OVERLOAD
     Dosage: 100 MG, BID, ORAL 500 MG, QD
     Route: 048
     Dates: start: 20061208, end: 20070126
  2. VIDAZA [Concomitant]
  3. PROCRIT [Concomitant]
  4. VITAMIN B12 [Concomitant]
  5. NEXIUM [Concomitant]
  6. DIOVAN [Concomitant]
  7. ASPIRIN [Concomitant]
  8. PROCARDIA [Concomitant]
  9. PLAVIX [Concomitant]
  10. ZOCOR [Concomitant]
  11. DYAZIDE [Concomitant]

REACTIONS (8)
  - ARTHRALGIA [None]
  - BLOOD PRESSURE INCREASED [None]
  - FATIGUE [None]
  - HAEMOGLOBIN DECREASED [None]
  - HEADACHE [None]
  - NAUSEA [None]
  - PLATELET COUNT DECREASED [None]
  - WHITE BLOOD CELL COUNT DECREASED [None]
